FAERS Safety Report 26110896 (Version 1)
Quarter: 2025Q4

REPORT INFORMATION
  Report Type: Spontaneous
  Country: CH (occurrence: CH)
  Receive Date: 20251202
  Receipt Date: 20251202
  Transmission Date: 20260118
  Serious: Yes (Other)
  Sender: SERVIER
  Company Number: CH-SERVIER-S25017174

PATIENT

DRUGS (8)
  1. VORANIGO [Suspect]
     Active Substance: VORASIDENIB
     Indication: Glioma
     Dosage: UNK
     Route: 048
     Dates: start: 20250127
  2. AMLODIPINE\VALSARTAN [Concomitant]
     Active Substance: AMLODIPINE\VALSARTAN
     Indication: Hypertension
     Dosage: UNK, (1-0-0-0 TABLET PER OS)
     Route: 048
  3. Rosuvastatin axapharm [Concomitant]
     Indication: Product used for unknown indication
     Dosage: 5 MG, QD, (0-1-0-0 TABLET PER OS)
     Route: 048
  4. CALCIUM\CHOLECALCIFEROL [Concomitant]
     Active Substance: CALCIUM\CHOLECALCIFEROL
     Indication: Product used for unknown indication
     Dosage: 500 UNK, QD  (1-0-0-0 TABLET PER OS)
     Route: 048
  5. MAGNESIUM [Concomitant]
     Active Substance: MAGNESIUM
     Indication: Product used for unknown indication
     Dosage: 300 MG, QD  (0-0-1-0 PER OS)
     Route: 048
  6. ACULAR [Concomitant]
     Active Substance: KETOROLAC TROMETHAMINE
     Indication: Product used for unknown indication
     Dosage: 5 ML, QID (1-1-1-1)
     Route: 047
  7. Eltroxin lf [Concomitant]
     Indication: Hypothyroidism
     Dosage: 0.1 MG, QD (1-0-0-0 TABLET PER OS)
     Route: 048
  8. PANTOPRAZOLE [Concomitant]
     Active Substance: PANTOPRAZOLE
     Indication: Gastrooesophageal reflux disease
     Dosage: UNK
     Route: 065

REACTIONS (1)
  - Adenocarcinoma of colon [Not Recovered/Not Resolved]

NARRATIVE: CASE EVENT DATE: 20251113
